FAERS Safety Report 20667853 (Version 1)
Quarter: 2022Q2

REPORT INFORMATION
  Report Type: Spontaneous
  Country: US (occurrence: US)
  Receive Date: 20220404
  Receipt Date: 20220404
  Transmission Date: 20220720
  Serious: No
  Sender: FDA-Public Use
  Company Number: US-Encube-000007

PATIENT
  Sex: Male

DRUGS (1)
  1. DICLOFENAC SODIUM [Suspect]
     Active Substance: DICLOFENAC SODIUM
     Indication: Arthritis
     Dosage: ONCE A DAY
     Route: 061

REACTIONS (4)
  - Pruritus [Unknown]
  - Skin wrinkling [Unknown]
  - Inappropriate schedule of product administration [Unknown]
  - Chills [Unknown]
